FAERS Safety Report 18794379 (Version 1)
Quarter: 2021Q1

REPORT INFORMATION
  Report Type: Spontaneous
  Country: US (occurrence: US)
  Receive Date: 20210127
  Receipt Date: 20210127
  Transmission Date: 20210419
  Serious: Yes (Other)
  Sender: FDA-Public Use
  Company Number: US-PURDUE PHARMA-USA-2021-0200726

PATIENT

DRUGS (2)
  1. NORCO [Suspect]
     Active Substance: ACETAMINOPHEN\HYDROCODONE BITARTRATE
     Indication: PAIN
     Dosage: 2 TABLET (10/325 MG), Q4H PRN
     Route: 048
     Dates: start: 20180417
  2. MS CONTIN [Suspect]
     Active Substance: MORPHINE SULFATE
     Indication: PAIN
     Dosage: 20 MG, Q12H
     Route: 048
     Dates: start: 20200720

REACTIONS (1)
  - Mental status changes [Unknown]
